FAERS Safety Report 10567246 (Version 2)
Quarter: 2014Q4

REPORT INFORMATION
  Report Type: Other
  Country: IT (occurrence: IT)
  Receive Date: 20141105
  Receipt Date: 20141110
  Transmission Date: 20150529
  Serious: Yes (Death)
  Sender: FDA-Public Use
  Company Number: IT-MYLANLABS-2014M1009493

PATIENT

DRUGS (4)
  1. AVASTIN [Suspect]
     Active Substance: BEVACIZUMAB
     Indication: LARGE CELL LUNG CANCER
     Dosage: 7.5 MG/KG, CYCLE
     Route: 042
  2. GEMCITABINE HYDROCHLORIDE. [Suspect]
     Active Substance: GEMCITABINE HYDROCHLORIDE
     Indication: LARGE CELL LUNG CANCER
     Dosage: 1 DF, CYCLE
     Route: 042
  3. CISPLATIN. [Suspect]
     Active Substance: CISPLATIN
     Indication: LARGE CELL LUNG CANCER
     Dosage: 1 DF, CYCLE
     Route: 042
  4. AVASTIN [Suspect]
     Active Substance: BEVACIZUMAB
     Dosage: 400 MG, CYCLE
     Route: 042

REACTIONS (1)
  - Haemolysis [Fatal]

NARRATIVE: CASE EVENT DATE: 20140909
